FAERS Safety Report 9000086 (Version 2)
Quarter: 2013Q3

REPORT INFORMATION
  Report Type: Report from Study
  Country: JP (occurrence: JP)
  Receive Date: 20130102
  Receipt Date: 20130729
  Transmission Date: 20140515
  Serious: Yes (Other)
  Sender: FDA-Public Use
  Company Number: JP-VERTEX PHARMACEUTICALS INC.-AE-2012-007320

PATIENT
  Age: 64 Year
  Sex: Female

DRUGS (17)
  1. VX-950 (TELAPREVIR) [Suspect]
     Indication: CHRONIC HEPATITIS C
     Dosage: 2250 MG, QD
     Route: 048
     Dates: start: 20120131, end: 20120411
  2. PEGINTERFERON ALFA-2B [Suspect]
     Indication: CHRONIC HEPATITIS C
     Dosage: 1.03 ?G/KG, QW
     Route: 058
     Dates: start: 20120131, end: 20120213
  3. PEGINTERFERON ALFA-2B [Suspect]
     Dosage: 0.69 ?G/KG, QW
     Route: 058
     Dates: start: 20120214, end: 20120508
  4. PEGINTERFERON ALFA-2B [Suspect]
     Dosage: 60 ?G/KG, QW
     Route: 058
     Dates: start: 20120509, end: 20120522
  5. PEGINTERFERON ALFA-2B [Suspect]
     Dosage: 80 ?G/KG, QW
     Route: 058
     Dates: start: 20120523, end: 20120718
  6. RIBAVIRIN [Suspect]
     Indication: CHRONIC HEPATITIS C
     Dosage: 400 MG, QD
     Route: 048
     Dates: start: 20120131, end: 20120228
  7. RIBAVIRIN [Suspect]
     Dosage: 200 MG, QD
     Route: 048
     Dates: start: 20120229, end: 20120327
  8. RIBAVIRIN [Suspect]
     Dosage: 200 MG/ 2 DAYS
     Route: 048
     Dates: start: 20120328, end: 20120508
  9. RIBAVIRIN [Suspect]
     Dosage: 200 MG, QD
     Route: 048
     Dates: start: 20120509, end: 20120612
  10. RIBAVIRIN [Suspect]
     Dosage: 400 MG, QD
     Route: 048
     Dates: start: 20120613, end: 20120718
  11. TAKEPRON [Concomitant]
     Dosage: 15 MG, QD
     Route: 048
     Dates: start: 20120131, end: 20120725
  12. LOXONIN [Concomitant]
     Dosage: 3 DF, QD
     Route: 048
  13. LOXONIN [Concomitant]
     Dosage: 180 MG, UNK
     Route: 048
  14. MICARDIS [Concomitant]
     Dosage: 40 MG, QD
     Route: 048
  15. ALLEGRA [Concomitant]
     Dosage: 120 MG, QD
     Route: 048
     Dates: start: 20120131, end: 20120306
  16. CALBLOCK [Concomitant]
     Dosage: 16 MG, QD
     Route: 048
     Dates: start: 20120201
  17. PREDONINE [Concomitant]
     Dosage: 10 MG, QD
     Route: 048
     Dates: start: 20120321, end: 20120502

REACTIONS (4)
  - Anaemia [Not Recovered/Not Resolved]
  - Haemoglobin decreased [Recovered/Resolved]
  - Pyrexia [Not Recovered/Not Resolved]
  - Decreased appetite [Not Recovered/Not Resolved]
